FAERS Safety Report 5601984-6 (Version None)
Quarter: 2008Q1

REPORT INFORMATION
  Report Type: 
  Country: None (occurrence: None)
  Receive Date: 20080125
  Receipt Date: 20080122
  Transmission Date: 20080703
  Serious: Yes (Death)
  Sender: FDA-Public Use
  Company Number: US-BAYER-US-2007-028533

PATIENT

DRUGS (1)
  1. MAGNEVIST [Suspect]
     Dosage: UNIT DOSE: 15 ML
     Dates: start: 20070731, end: 20070731

REACTIONS (1)
  - CONTRAST MEDIA REACTION [None]
